FAERS Safety Report 17002024 (Version 2)
Quarter: 2019Q4

REPORT INFORMATION
  Report Type: Spontaneous
  Country: US (occurrence: US)
  Receive Date: 20191106
  Receipt Date: 20191220
  Transmission Date: 20200122
  Serious: Yes (Death, Other)
  Sender: FDA-Public Use
  Company Number: US-JAZZ-2019-US-015201

PATIENT
  Age: 75 Year
  Sex: Male

DRUGS (1)
  1. VYXEOS [Suspect]
     Active Substance: CYTARABINE\DAUNORUBICIN
     Indication: PRODUCT USED FOR UNKNOWN INDICATION
     Dosage: UNK
     Dates: start: 20181019

REACTIONS (1)
  - Death [Fatal]

NARRATIVE: CASE EVENT DATE: 20190712
